FAERS Safety Report 9672371 (Version 1)
Quarter: 2013Q4

REPORT INFORMATION
  Report Type: Spontaneous
  Country: US (occurrence: US)
  Receive Date: 20131106
  Receipt Date: 20131106
  Transmission Date: 20140711
  Serious: No
  Sender: FDA-Public Use
  Company Number: US-TEVA-442181USA

PATIENT
  Age: 74 Year
  Sex: Female
  Weight: 118.04 kg

DRUGS (3)
  1. PROAIR HFA [Suspect]
     Indication: ASTHMA
     Dosage: 2 PUFFS TWICE A DAY
  2. RHEMATOID ARTHRITIS INJECTION [Concomitant]
     Indication: RHEUMATOID ARTHRITIS
  3. UNSPECIFIED [Concomitant]

REACTIONS (4)
  - Seasonal allergy [Not Recovered/Not Resolved]
  - Hypersensitivity [Not Recovered/Not Resolved]
  - Wheezing [Not Recovered/Not Resolved]
  - Cough [Unknown]
